FAERS Safety Report 7149376-5 (Version None)
Quarter: 2010Q4

REPORT INFORMATION
  Report Type: 
  Country: None (occurrence: None)
  Receive Date: 20101209
  Receipt Date: 20100831
  Transmission Date: 20110411
  Serious: No
  Sender: FDA-Public Use
  Company Number: US-KINGPHARMUSA00001-K201001120

PATIENT
  Age: 50 Year
  Sex: Male

DRUGS (1)
  1. EMBEDA [Suspect]
     Dosage: 50 MG, BID

REACTIONS (1)
  - ALOPECIA [None]
